FAERS Safety Report 25997601 (Version 1)
Quarter: 2025Q4

REPORT INFORMATION
  Report Type: Spontaneous
  Country: US (occurrence: US)
  Receive Date: 20251104
  Receipt Date: 20251104
  Transmission Date: 20260118
  Serious: No
  Sender: CELLTRION
  Company Number: US-CELLTRION INC.-2025US020412

PATIENT

DRUGS (1)
  1. ZYMFENTRA [Suspect]
     Active Substance: INFLIXIMAB-DYYB
     Indication: Crohn^s disease
     Dosage: 120 MILLIGRAM PER MILLILITRE, EVERY 2 WEEKS
     Route: 058

REACTIONS (3)
  - Vein rupture [Unknown]
  - Psoriasis [Unknown]
  - Remission not achieved [Unknown]
